FAERS Safety Report 19180328 (Version 1)
Quarter: 2021Q2

REPORT INFORMATION
  Report Type: Spontaneous
  Country: US (occurrence: US)
  Receive Date: 20210426
  Receipt Date: 20210426
  Transmission Date: 20210717
  Serious: No
  Sender: FDA-Public Use
  Company Number: US-PFIZER INC-2021359545

PATIENT
  Age: 49 Year
  Sex: Female

DRUGS (5)
  1. MODERNA COVID?19 VACCINE [Concomitant]
     Active Substance: CX-024414
  2. IBRANCE [Suspect]
     Active Substance: PALBOCICLIB
     Indication: BREAST CANCER
     Dosage: 125 MG, DAILY
     Route: 048
     Dates: start: 202010
  3. CALCIUM [Concomitant]
     Active Substance: CALCIUM
  4. MULTIVITAMINUM [Concomitant]
     Active Substance: VITAMINS
  5. VITAMIN D3 [Concomitant]
     Active Substance: CHOLECALCIFEROL

REACTIONS (1)
  - Blood count abnormal [Unknown]
